FAERS Safety Report 9963022 (Version 3)
Quarter: 2014Q2

REPORT INFORMATION
  Report Type: Spontaneous
  Country: FR (occurrence: FR)
  Receive Date: 20140305
  Receipt Date: 20140409
  Transmission Date: 20141212
  Serious: Yes (Hospitalization, Other)
  Sender: FDA-Public Use
  Company Number: FR-ASTRAZENECA-2014SE14586

PATIENT
  Age: 16887 Day
  Sex: Female

DRUGS (8)
  1. XEROQUEL [Suspect]
     Indication: DEPRESSION
     Dosage: (PROGRESSIVE INCREASE OF DOSES) UP TO 300 MG PER DAY
     Route: 048
     Dates: start: 20131219, end: 20140223
  2. XEROQUEL [Suspect]
     Indication: BIPOLAR DISORDER
     Dosage: (PROGRESSIVE INCREASE OF DOSES) UP TO 300 MG PER DAY
     Route: 048
     Dates: start: 20131219, end: 20140223
  3. STILNOX [Concomitant]
     Dosage: LONG LASTING TREATMENT 10 MG EVERY DAY
     Route: 048
     Dates: start: 20130918
  4. PROZAC [Concomitant]
     Dosage: LONG LASTING TREATMENT 60 MG EVERY DAY
     Route: 048
     Dates: start: 20131119
  5. THERALENE [Concomitant]
     Indication: SLEEP DISORDER
     Route: 048
     Dates: start: 20140121
  6. LYSANXIA [Concomitant]
     Indication: ANXIETY
     Dosage: LONG LASTING TREATMENT IF NEEDED
     Route: 048
  7. SERESTA [Concomitant]
     Route: 048
     Dates: start: 20140212
  8. HEPTAMYL [Concomitant]
     Indication: BLOOD PRESSURE DECREASED
     Dosage: LONG LASTING TREATMENT
     Route: 048

REACTIONS (2)
  - Thrombophlebitis superficial [Recovered/Resolved]
  - Sedation [Recovered/Resolved]
